FAERS Safety Report 21350371 (Version 9)
Quarter: 2023Q1

REPORT INFORMATION
  Report Type: Report from Study
  Country: IN (occurrence: None)
  Receive Date: 20220919
  Receipt Date: 20230320
  Transmission Date: 20230418
  Serious: Yes (Death, Hospitalization)
  Sender: FDA-Public Use
  Company Number: IN-ROCHE-3173490

PATIENT
  Age: 66 Year
  Sex: Male
  Weight: 56.4 kg

DRUGS (23)
  1. RITUXIMAB [Suspect]
     Active Substance: RITUXIMAB
     Indication: Diffuse large B-cell lymphoma recurrent
     Dosage: DATE OF MOST RECENT DOSE OF RITUXIMAB (604 MG) PRIOR TO AE ONSET: 19/AUG/2022.
     Route: 041
     Dates: start: 20220819
  2. DEXTROSE [Concomitant]
     Active Substance: DEXTROSE
     Dosage: 24/AUG/2022 50 PERCENT
     Route: 042
     Dates: start: 20220820, end: 20220821
  3. PANTOPRAZOLE [Concomitant]
     Active Substance: PANTOPRAZOLE
     Dosage: 24/AUG/2022
     Route: 048
     Dates: start: 20220820, end: 20220823
  4. SEPTRAN [Concomitant]
     Dosage: 1 TABLET
     Route: 048
     Dates: start: 20220820, end: 20220820
  5. MUCOBENZ [Concomitant]
     Route: 048
     Dates: start: 20220820, end: 20220825
  6. DUOLIN [Concomitant]
     Dosage: DUOLIN NEB ROUTE: INHALED
     Dates: start: 20220820, end: 20220823
  7. FEBUXOSTAT [Concomitant]
     Active Substance: FEBUXOSTAT
     Route: 048
     Dates: start: 20220820, end: 20220824
  8. ACETAMINOPHEN [Concomitant]
     Active Substance: ACETAMINOPHEN
     Route: 048
     Dates: start: 20220820, end: 20220825
  9. ALBUMIN HUMAN [Concomitant]
     Active Substance: ALBUMIN HUMAN
     Route: 042
     Dates: start: 20220820, end: 20220823
  10. MEROPENEM [Concomitant]
     Active Substance: MEROPENEM
     Route: 042
     Dates: start: 20220820
  11. DEXTROSE [Concomitant]
     Active Substance: DEXTROSE
     Route: 042
     Dates: start: 20220821, end: 20220823
  12. POLYMYXIN B [Concomitant]
     Active Substance: POLYMYXIN B
     Dosage: 2000000 UNIT
     Route: 042
  13. CASPOFUNGIN [Concomitant]
     Active Substance: CASPOFUNGIN
     Route: 042
  14. LEVOLIN [Concomitant]
     Dosage: 0.63
     Dates: start: 20220823
  15. NITROGLYCERIN [Concomitant]
     Active Substance: NITROGLYCERIN
     Route: 042
     Dates: start: 20220823, end: 20220823
  16. DEXMEDETOMIDINE [Concomitant]
     Active Substance: DEXMEDETOMIDINE
     Route: 042
     Dates: start: 20220823
  17. TEICOPLANIN [Concomitant]
     Active Substance: TEICOPLANIN
     Route: 042
  18. A-HYDROCORT [Concomitant]
     Active Substance: HYDROCORTISONE SODIUM SUCCINATE
     Dosage: 200/50
     Route: 042
  19. NOREPINEPHRINE [Concomitant]
     Active Substance: NOREPINEPHRINE
     Dosage: 8/40
     Route: 042
  20. VASOPRESINA [Concomitant]
     Dosage: 2.4ML/L
     Route: 042
  21. PROPOFOL [Concomitant]
     Active Substance: PROPOFOL
     Route: 042
  22. FENTANYL [Concomitant]
     Active Substance: FENTANYL
     Dosage: 50 MCG
     Route: 042
  23. AUXISODA [Concomitant]
     Route: 042
     Dates: start: 20220821, end: 20220821

REACTIONS (1)
  - Acute kidney injury [Fatal]

NARRATIVE: CASE EVENT DATE: 20220820
